FAERS Safety Report 5412816-3 (Version None)
Quarter: 2007Q3

REPORT INFORMATION
  Report Type: 
  Country: None (occurrence: None)
  Receive Date: 20070713
  Receipt Date: 20070510
  Transmission Date: 20080115
  Serious: No
  Sender: FDA-Public Use
  Company Number: 2007SP001741

PATIENT
  Age: 58 Year
  Sex: Female
  Weight: 63.5036 kg

DRUGS (8)
  1. LUNESTA [Suspect]
     Indication: INSOMNIA
     Dosage: 3 MG;HS;ORAL,3 MG;HS;ORAL
     Route: 048
     Dates: start: 20070401, end: 20070401
  2. LUNESTA [Suspect]
     Indication: INSOMNIA
     Dosage: 3 MG;HS;ORAL,3 MG;HS;ORAL
     Route: 048
     Dates: start: 20070508
  3. CALCIUM [Concomitant]
  4. IBANDRONATE SODIUM [Concomitant]
  5. DICYCLOMINE [Concomitant]
  6. FOLIC ACID [Concomitant]
  7. METAMUCIL [Concomitant]
  8. XANAX [Concomitant]

REACTIONS (1)
  - DYSGEUSIA [None]
